FAERS Safety Report 18080401 (Version 1)
Quarter: 2020Q3

REPORT INFORMATION
  Report Type: Spontaneous
  Country: US (occurrence: US)
  Receive Date: 20200728
  Receipt Date: 20200728
  Transmission Date: 20201103
  Serious: No
  Sender: FDA-Public Use
  Company Number: US-TEVA-2020-US-1806289

PATIENT
  Age: 41 Year
  Sex: Male

DRUGS (1)
  1. FAZACLO ODT GENERIC TEVA [Suspect]
     Active Substance: CLOZAPINE
     Indication: SCHIZOPHRENIA
     Dosage: 200 MILLIGRAM DAILY;
     Route: 048

REACTIONS (2)
  - Product substitution issue [Unknown]
  - Atrioventricular block second degree [Unknown]
